FAERS Safety Report 7304564-X (Version None)
Quarter: 2011Q1

REPORT INFORMATION
  Report Type: 
  Country: None (occurrence: None)
  Receive Date: 20110222
  Receipt Date: 20100416
  Transmission Date: 20110831
  Serious: Yes (Other)
  Sender: FDA-Public Use
  Company Number: US-RANBAXY-2010US-33296

PATIENT

DRUGS (11)
  1. ASACOL [Concomitant]
     Indication: COLITIS ULCERATIVE
     Route: 065
  2. SOMA [Concomitant]
     Indication: PAIN
     Route: 065
  3. PENTAMIDINE ISETHIONATE [Concomitant]
     Indication: PROPHYLAXIS
     Route: 065
  4. VICODIN [Concomitant]
     Indication: PROCEDURAL PAIN
     Route: 065
  5. ACYCLOVIR (PLACEBO) [Suspect]
     Indication: ANTIVIRAL PROPHYLAXIS
     Dosage: 400 MG, BID
     Route: 048
     Dates: start: 20071219, end: 20080328
  6. CELLCEPT [Suspect]
     Indication: PROPHYLAXIS AGAINST TRANSPLANT REJECTION
     Route: 065
  7. PREDNISONE [Concomitant]
     Indication: IMMUNOSUPPRESSION
     Route: 065
  8. PROTONIX [Concomitant]
     Indication: PROPHYLAXIS
     Route: 065
  9. GANCICLOVIR [Suspect]
     Indication: ANTIVIRAL PROPHYLAXIS
     Dosage: 1000 MG, TID
     Route: 048
     Dates: start: 20071219, end: 20080328
  10. MARIBAVIR (PLACEBO) [Suspect]
     Indication: ANTIVIRAL PROPHYLAXIS
     Dosage: 100 MG, 2 IN 1 D
     Route: 048
     Dates: start: 20071219, end: 20080328
  11. PROGRAF [Concomitant]
     Indication: IMMUNOSUPPRESSION
     Route: 065

REACTIONS (2)
  - CYTOMEGALOVIRUS GASTROENTERITIS [None]
  - DRUG INEFFECTIVE [None]
